FAERS Safety Report 12737644 (Version 2)
Quarter: 2018Q2

REPORT INFORMATION
  Report Type: Spontaneous
  Country: US (occurrence: US)
  Receive Date: 20160912
  Receipt Date: 20180515
  Transmission Date: 20180711
  Serious: No
  Sender: FDA-Public Use
  Company Number: US-SA-2016SA115232

PATIENT

DRUGS (5)
  1. TOUJEO [Suspect]
     Active Substance: INSULIN GLARGINE
     Route: 065
  2. FLEXTOUCH/INSULIN DETEMIR [Suspect]
     Active Substance: INSULIN DETEMIR
     Route: 065
  3. APIDRA [Suspect]
     Active Substance: INSULIN GLULISINE
     Indication: DIABETES MELLITUS
     Route: 065
  4. LEVEMIR [Suspect]
     Active Substance: INSULIN DETEMIR
     Route: 065
  5. SOLOSTAR [Concomitant]
     Active Substance: DEVICE

REACTIONS (2)
  - Blood glucose increased [None]
  - Drug ineffective [None]
